FAERS Safety Report 24058937 (Version 1)
Quarter: 2024Q3

REPORT INFORMATION
  Report Type: Spontaneous
  Country: US (occurrence: US)
  Receive Date: 20240708
  Receipt Date: 20240708
  Transmission Date: 20241017
  Serious: No
  Sender: AUROBINDO
  Company Number: US-AUROBINDO-AUR-APL-2024-017881

PATIENT
  Age: 58 Year
  Sex: Female

DRUGS (1)
  1. VALACYCLOVIR [Suspect]
     Active Substance: VALACYCLOVIR HYDROCHLORIDE
     Indication: Genital herpes
     Dosage: UNK
     Route: 065

REACTIONS (4)
  - Product dose omission issue [Unknown]
  - Product substitution issue [Unknown]
  - Therapeutic response changed [Unknown]
  - Drug ineffective [Unknown]
